FAERS Safety Report 5648927-7 (Version None)
Quarter: 2008Q1

REPORT INFORMATION
  Report Type: 
  Country: None (occurrence: None)
  Receive Date: 20080304
  Receipt Date: 20080222
  Transmission Date: 20080703
  Serious: Yes (Other)
  Sender: FDA-Public Use
  Company Number: US-JNJFOC-20080206709

PATIENT
  Sex: Female

DRUGS (2)
  1. EXTRA STRENGTH TYLENOL [Suspect]
  2. EXTRA STRENGTH TYLENOL [Suspect]
     Indication: HEADACHE

REACTIONS (5)
  - ANXIETY [None]
  - HEPATOCELLULAR INJURY [None]
  - INSOMNIA [None]
  - OLIGURIA [None]
  - PRURITUS [None]
